FAERS Safety Report 10373767 (Version 1)
Quarter: 2014Q1

REPORT INFORMATION
  Report Type: Spontaneous
  Country: US (occurrence: None)
  Receive Date: 20140306
  Receipt Date: 20140306
  Transmission Date: 20141002
  Serious: Yes (Other)
  Sender: FDA-Public Use
  Company Number: 163-21880-13051274

PATIENT
  Age: 69 Year
  Sex: Female
  Weight: 86.18 kg

DRUGS (9)
  1. REVLIMID (LENALIDOMIDE) (10 MILLIGRAM, CAPSULES) [Suspect]
     Indication: PLASMA CELL MYELOMA
     Dosage: 1 IN 1 D
     Route: 048
     Dates: start: 20110712
  2. ACYCLOVIR [Concomitant]
  3. CARVEDILOL [Concomitant]
  4. COUMADIN (WARFARIN SODIUM) [Concomitant]
  5. HYDROCHLOROTHIAZIDE [Concomitant]
  6. KLOR-CON (POTASSIUM CHLORIDE) [Concomitant]
  7. NIFEDIPINE ER (NIFEDIPINE) [Concomitant]
  8. PRAVASTATIN SODIUM) [Concomitant]
  9. RANITIDINE HCL [Concomitant]

REACTIONS (1)
  - Atrial fibrillation [None]
